FAERS Safety Report 10267383 (Version 1)
Quarter: 2014Q2

REPORT INFORMATION
  Report Type: Spontaneous
  Country: US (occurrence: None)
  Receive Date: 20140626
  Receipt Date: 20140626
  Transmission Date: 20141212
  Serious: Yes (Disabling, Other)
  Sender: FDA-Public Use
  Company Number: None

PATIENT
  Age: 48 Week
  Sex: Female
  Weight: 56.7 kg

DRUGS (1)
  1. TRAMADOL 25 MG [Suspect]
     Indication: ANTIINFLAMMATORY THERAPY
     Route: 048
     Dates: start: 20070131, end: 20140619

REACTIONS (4)
  - Convulsion [None]
  - Scar [None]
  - Muscle twitching [None]
  - Unevaluable event [None]
